FAERS Safety Report 8060903-6 (Version None)
Quarter: 2012Q1

REPORT INFORMATION
  Report Type: 
  Country: None (occurrence: None)
  Receive Date: 20120120
  Receipt Date: 20110322
  Transmission Date: 20120608
  Serious: No
  Sender: FDA-Public Use
  Company Number: US-ALLERGAN-1104025US

PATIENT
  Sex: Male

DRUGS (2)
  1. REFRESH PLUS [Suspect]
     Indication: PRODUCT USED FOR UNKNOWN INDICATION
     Dosage: UNK
     Dates: start: 20101001
  2. RESTASIS [Suspect]
     Indication: PRODUCT USED FOR UNKNOWN INDICATION
     Dosage: UNK
     Dates: start: 20101001

REACTIONS (2)
  - DRUG INEFFECTIVE [None]
  - LACRIMATION INCREASED [None]
